FAERS Safety Report 5420665-5 (Version None)
Quarter: 2007Q3

REPORT INFORMATION
  Report Type: 
  Country: None (occurrence: None)
  Receive Date: 20070816
  Receipt Date: 20070725
  Transmission Date: 20080115
  Serious: Yes (Death)
  Sender: FDA-Public Use
  Company Number: 6036433

PATIENT
  Age: 23 Year
  Sex: Female

DRUGS (3)
  1. SERTRALINE [Suspect]
     Indication: DEPRESSION
     Dosage: ORAL
     Route: 048
  2. MICROGYNON (ETHINYLESTRADIOL, LEVONORGESTREL) [Concomitant]
  3. IBUPROFEN [Concomitant]

REACTIONS (1)
  - DEATH [None]
